FAERS Safety Report 7894084-6 (Version None)
Quarter: 2011Q4

REPORT INFORMATION
  Report Type: 
  Country: None (occurrence: None)
  Receive Date: 20111104
  Receipt Date: 20111101
  Transmission Date: 20120403
  Serious: No
  Sender: FDA-Public Use
  Company Number: US-PFIZER INC-2011267517

PATIENT
  Sex: Male
  Weight: 45.351 kg

DRUGS (4)
  1. GEODON [Suspect]
     Indication: CEREBROVASCULAR ACCIDENT
  2. GEODON [Suspect]
     Indication: MOOD DISORDER DUE TO A GENERAL MEDICAL CONDITION
     Dosage: 20 MG, 1X/DAY
     Route: 048
     Dates: start: 20101001
  3. TENEX [Concomitant]
     Dosage: UNK
  4. GEODON [Suspect]
     Indication: CEREBRAL HAEMORRHAGE

REACTIONS (4)
  - FATIGUE [None]
  - DRUG ADMINISTRATION ERROR [None]
  - SOMNOLENCE [None]
  - DRUG INTOLERANCE [None]
